FAERS Safety Report 12986847 (Version 1)
Quarter: 2016Q4

REPORT INFORMATION
  Report Type: Spontaneous
  Country: BR (occurrence: BR)
  Receive Date: 20161130
  Receipt Date: 20161130
  Transmission Date: 20170207
  Serious: Yes (Hospitalization, Other)
  Sender: FDA-Public Use
  Company Number: BR-ELI_LILLY_AND_COMPANY-BR201611010434

PATIENT
  Sex: Female

DRUGS (4)
  1. HUMULIN N [Suspect]
     Active Substance: INSULIN HUMAN
     Dosage: 10 IU, EACH EVENING
     Route: 065
  2. HUMULIN N [Suspect]
     Active Substance: INSULIN HUMAN
     Dosage: 15 IU, EACH MORNING
     Route: 065
  3. HUMULIN N [Suspect]
     Active Substance: INSULIN HUMAN
     Indication: DIABETES MELLITUS
     Dosage: 15 IU, EACH MORNING
     Route: 065
  4. HUMULIN N [Suspect]
     Active Substance: INSULIN HUMAN
     Dosage: 10 IU, EACH EVENING
     Route: 065

REACTIONS (3)
  - Cerebrovascular accident [Unknown]
  - Injection site pain [Unknown]
  - Blood glucose increased [Unknown]
